FAERS Safety Report 7008777-6 (Version None)
Quarter: 2010Q3

REPORT INFORMATION
  Report Type: 
  Country: None (occurrence: None)
  Receive Date: 20100921
  Receipt Date: 20100913
  Transmission Date: 20110219
  Serious: Yes (Death)
  Sender: FDA-Public Use
  Company Number: 201009AGG00955

PATIENT
  Age: 84 Year
  Sex: Female

DRUGS (5)
  1. TIROFIBAN HYDROCHLORIDE (AGGRASTAT TIROFIBAN (TIROFIBAN HCL) [Suspect]
     Indication: ACUTE CORONARY SYNDROME
     Dosage: INTRAVENOUS (NOT OTHERWISE SPECIFIED)
     Route: 042
  2. TIROFIBAN HYDROCHLORIDE (AGGRASTAT TIROFIBAN (TIROFIBAN HCL) [Suspect]
     Indication: THROMBOSIS
     Dosage: INTRAVENOUS (NOT OTHERWISE SPECIFIED)
     Route: 042
  3. ASPIRIN [Concomitant]
  4. CLOPIDOREL BISULFATE [Concomitant]
  5. HEPARIN [Concomitant]

REACTIONS (7)
  - CARDIAC FAILURE ACUTE [None]
  - HAEMATOCRIT DECREASED [None]
  - INFUSION RELATED REACTION [None]
  - LEFT VENTRICULAR FAILURE [None]
  - PULMONARY ALVEOLAR HAEMORRHAGE [None]
  - PULMONARY OEDEMA [None]
  - RESPIRATORY ARREST [None]
